FAERS Safety Report 7257894-4 (Version None)
Quarter: 2011Q1

REPORT INFORMATION
  Report Type: 
  Country: None (occurrence: None)
  Receive Date: 20110129
  Receipt Date: 20100609
  Transmission Date: 20110831
  Serious: No
  Sender: FDA-Public Use
  Company Number: US-ABBOTT-10P-163-0649619-00

PATIENT
  Sex: Female
  Weight: 72.64 kg

DRUGS (8)
  1. TOPAMAX [Concomitant]
     Indication: MIGRAINE
  2. LOVOXYL [Concomitant]
     Indication: HYPOTHYROIDISM
  3. HUMIRA [Suspect]
     Indication: RHEUMATOID ARTHRITIS
     Dates: start: 20091201
  4. PREDNISONE [Concomitant]
     Indication: RHEUMATOID ARTHRITIS
  5. CELEBREX [Concomitant]
     Indication: RHEUMATOID ARTHRITIS
  6. VERAPAMIL [Concomitant]
     Indication: MIGRAINE
  7. METHOTREXATE [Concomitant]
     Indication: RHEUMATOID ARTHRITIS
  8. IMMITREX [Concomitant]
     Indication: MIGRAINE

REACTIONS (5)
  - URINARY TRACT INFECTION [None]
  - ARTHRALGIA [None]
  - GASTROENTERITIS [None]
  - PYREXIA [None]
  - STREPTOCOCCAL INFECTION [None]
